FAERS Safety Report 4935371-0 (Version None)
Quarter: 2006Q1

REPORT INFORMATION
  Report Type: 
  Country: None (occurrence: None)
  Receive Date: 20060307
  Receipt Date: 20060222
  Transmission Date: 20060701
  Serious: Yes (Other)
  Sender: FDA-Public Use
  Company Number: US-GLAXOSMITHKLINE-A0594952A

PATIENT
  Age: 8 Year
  Sex: Male

DRUGS (5)
  1. ADVAIR DISKUS 100/50 [Suspect]
     Indication: ASTHMA
     Dosage: 1PUFF TWICE PER DAY
     Route: 055
     Dates: start: 20051201, end: 20060215
  2. SINGULAIR [Concomitant]
  3. ALLEGRA [Concomitant]
  4. ANTIBIOTICS [Concomitant]
  5. ALBUTEROL [Concomitant]

REACTIONS (1)
  - PARTIAL SEIZURES [None]
